FAERS Safety Report 8567505-3 (Version None)
Quarter: 2012Q3

REPORT INFORMATION
  Report Type: 
  Country: None (occurrence: None)
  Receive Date: 20120803
  Receipt Date: 20110920
  Transmission Date: 20120928
  Serious: No
  Sender: FDA-Public Use
  Company Number: US-ABBOTT-11P-163-0856195-00

PATIENT
  Sex: Female

DRUGS (4)
  1. PLAVIX [Concomitant]
     Indication: PRODUCT USED FOR UNKNOWN INDICATION
  2. NIASPAN [Suspect]
     Indication: LOW DENSITY LIPOPROTEIN INCREASED
     Dosage: AT BEDTIME
     Route: 048
     Dates: start: 20110824
  3. LIVALO [Concomitant]
     Indication: PRODUCT USED FOR UNKNOWN INDICATION
  4. OTC NON SPECIFIED VIT-B SUPPLEMENTS [Concomitant]
     Indication: BLOOD HOMOCYSTEINE INCREASED

REACTIONS (3)
  - FREQUENT BOWEL MOVEMENTS [None]
  - DIARRHOEA [None]
  - FLATULENCE [None]
